FAERS Safety Report 18664247 (Version 1)
Quarter: 2020Q4

REPORT INFORMATION
  Report Type: Spontaneous
  Country: AU (occurrence: AU)
  Receive Date: 20201225
  Receipt Date: 20201225
  Transmission Date: 20210114
  Serious: Yes (Other)
  Sender: FDA-Public Use
  Company Number: AU-IPSEN BIOPHARMACEUTICALS, INC.-2020-25474

PATIENT
  Sex: Female

DRUGS (1)
  1. BOTULINUM TOXIN TYPE A [Suspect]
     Active Substance: BOTULINUM TOXIN TYPE A
     Indication: OFF LABEL USE
     Dosage: DOSE NOT REPORTED
     Route: 065

REACTIONS (4)
  - Off label use [Unknown]
  - Feeling abnormal [Unknown]
  - Deafness unilateral [Unknown]
  - Viral infection [Unknown]
